FAERS Safety Report 4283419-1 (Version None)
Quarter: 2004Q1

REPORT INFORMATION
  Report Type: 
  Country: None (occurrence: None)
  Receive Date: 20040115
  Receipt Date: 20030812
  Transmission Date: 20041129
  Serious: Yes (Death)
  Sender: FDA-Public Use
  Company Number: US-JNJFOC-20030707242

PATIENT
  Age: 74 Year
  Sex: Female

DRUGS (1)
  1. DOXIL [Suspect]
     Indication: ENDOMETRIAL CANCER
     Dates: start: 20020101, end: 20020501

REACTIONS (1)
  - DISEASE PROGRESSION [None]
